FAERS Safety Report 21630069 (Version 1)
Quarter: 2022Q4

REPORT INFORMATION
  Report Type: Other
  Country: None (occurrence: JP)
  Receive Date: 20221122
  Receipt Date: 20221122
  Transmission Date: 20230113
  Serious: Yes (Life-Threatening, Other)
  Sender: FDA-Public Use
  Company Number: JP-Breckenridge Pharmaceutical, Inc.-2135171

PATIENT
  Age: 50 Year
  Sex: Male

DRUGS (1)
  1. EPLERENONE [Suspect]
     Active Substance: EPLERENONE
     Indication: Eosinophilic myocarditis
     Route: 048

REACTIONS (4)
  - Colitis [Recovered/Resolved]
  - Skin ulcer [Recovered/Resolved]
  - Peripheral venous disease [Recovered/Resolved]
  - Haematochezia [Recovered/Resolved]
